FAERS Safety Report 5319959-3 (Version None)
Quarter: 2007Q2

REPORT INFORMATION
  Report Type: 
  Country: None (occurrence: None)
  Receive Date: 20070502
  Receipt Date: 20070416
  Transmission Date: 20071010
  Serious: Yes (Hospitalization)
  Sender: FDA-Public Use
  Company Number: 8023321

PATIENT
  Age: 72 Year
  Sex: Female

DRUGS (4)
  1. KEPPRA [Suspect]
     Indication: CONVULSION
     Dosage: 2 G 1/D PO
     Route: 048
     Dates: start: 20061026, end: 20070202
  2. ZYRTEC [Suspect]
     Indication: PRURITUS
     Dosage: 1 DF 1/D  PO
     Route: 048
     Dates: start: 20061122, end: 20070123
  3. DEPAKENE [Suspect]
     Dosage: 500 MG 1/D
  4. RIVOTRIL [Concomitant]

REACTIONS (3)
  - HYPERTHYROIDISM [None]
  - NEUTROPENIA [None]
  - PRURITUS [None]
